FAERS Safety Report 20648199 (Version 1)
Quarter: 2022Q1

REPORT INFORMATION
  Report Type: Spontaneous
  Country: US (occurrence: None)
  Receive Date: 20220328
  Receipt Date: 20220328
  Transmission Date: 20220423
  Serious: No
  Sender: FDA-Public Use
  Company Number: None

PATIENT
  Age: 38 Year
  Sex: Female
  Weight: 65.77 kg

DRUGS (1)
  1. PREGABALIN [Suspect]
     Active Substance: PREGABALIN
     Indication: Fibromyalgia
     Dosage: FREQUENCY : 3 TIMES A DAY;?
     Dates: start: 201907, end: 201908

REACTIONS (2)
  - Drug hypersensitivity [None]
  - Skin burning sensation [None]

NARRATIVE: CASE EVENT DATE: 20190701
